FAERS Safety Report 24692375 (Version 1)
Quarter: 2024Q4

REPORT INFORMATION
  Report Type: Spontaneous
  Country: AU (occurrence: AU)
  Receive Date: 20241203
  Receipt Date: 20241203
  Transmission Date: 20250115
  Serious: Yes (Other)
  Sender: HILL DERMACEUTICALS, INC.
  Company Number: AU-Hill Dermaceuticals, Inc.-2166417

PATIENT
  Age: 36 Year
  Sex: Male

DRUGS (5)
  1. FLUOROURACIL [Suspect]
     Active Substance: FLUOROURACIL
     Indication: Product used for unknown indication
  2. LEFLUNOMIDE [Suspect]
     Active Substance: LEFLUNOMIDE
  3. LEUCOVORIN CALCIUM [Suspect]
     Active Substance: LEUCOVORIN CALCIUM
  4. CAPECITABINE [Suspect]
     Active Substance: CAPECITABINE
  5. SUNITINIB [Suspect]
     Active Substance: SUNITINIB

REACTIONS (5)
  - Malignant ascites [Unknown]
  - Off label use [Unknown]
  - Product use in unapproved indication [Unknown]
  - Metastases to central nervous system [Unknown]
  - Pancreatic neuroendocrine tumour metastatic [Unknown]
